FAERS Safety Report 5258080-X (Version None)
Quarter: 2007Q1

REPORT INFORMATION
  Report Type: 
  Country: None (occurrence: None)
  Receive Date: 20070307
  Receipt Date: 20070222
  Transmission Date: 20070707
  Serious: Yes (Hospitalization)
  Sender: FDA-Public Use
  Company Number: DE-SHR-DE-2007-006328

PATIENT
  Sex: Male
  Weight: 106 kg

DRUGS (9)
  1. FLUDARABINE PHOSPHATE (SH L 573) [Suspect]
     Dosage: 30 MG/M2, UNK
     Dates: start: 20050216, end: 20050220
  2. CAMPATH [Suspect]
     Dosage: 20 MG, UNK
     Route: 042
     Dates: start: 20050216, end: 20050220
  3. AMOXICILLIN [Concomitant]
     Dosage: 1 G, 3X/DAY
  4. FAMVIR                                  /UNK/ [Concomitant]
     Dosage: 250 MG, 3X/DAY
  5. SEMPERA [Concomitant]
     Dosage: 20 ML, 2X/DAY
  6. OMEP [Concomitant]
     Dosage: 20 MG, 1X/DAY
  7. AMPHO-MORONAL [Concomitant]
     Dosage: UNK, 4X/DAY
  8. COTRIM FORTE ^HEUMANN^ [Concomitant]
     Dosage: 2 TAB(S), 2X/WEEK
  9. LEUCOVORIN CALCIUM [Concomitant]
     Dosage: 15 MG, 1X/DAY

REACTIONS (6)
  - CATHETER BACTERAEMIA [None]
  - HERPES SIMPLEX [None]
  - LEUKOPENIA [None]
  - MUCOSAL INFLAMMATION [None]
  - PSEUDOMONAL SEPSIS [None]
  - TRANSPLANT FAILURE [None]
